FAERS Safety Report 8490511-4 (Version None)
Quarter: 2012Q3

REPORT INFORMATION
  Report Type: 
  Country: None (occurrence: None)
  Receive Date: 20120705
  Receipt Date: 20120702
  Transmission Date: 20120928
  Serious: Yes (Other)
  Sender: FDA-Public Use
  Company Number: PHHY2012US055990

PATIENT
  Age: 48 Year
  Sex: Female

DRUGS (1)
  1. VANCOMYCIN [Suspect]
     Indication: STAPHYLOCOCCAL INFECTION
     Route: 042

REACTIONS (10)
  - RASH PRURITIC [None]
  - PYREXIA [None]
  - EOSINOPHILIA [None]
  - NAUSEA [None]
  - DYSPNOEA [None]
  - CHEST DISCOMFORT [None]
  - DIARRHOEA [None]
  - PULMONARY EMBOLISM [None]
  - DRUG RASH WITH EOSINOPHILIA AND SYSTEMIC SYMPTOMS [None]
  - HEPATITIS [None]
